FAERS Safety Report 4530656-4 (Version None)
Quarter: 2004Q4

REPORT INFORMATION
  Report Type: 
  Country: None (occurrence: None)
  Receive Date: 20041217
  Receipt Date: 20041209
  Transmission Date: 20050328
  Serious: Yes (Hospitalization, Other)
  Sender: FDA-Public Use
  Company Number: FR-ABBOTT-04P-056-0283044-00

PATIENT
  Age: 50 Year
  Sex: Male
  Weight: 56 kg

DRUGS (9)
  1. NORVIR [Suspect]
     Indication: HIV INFECTION
     Route: 048
     Dates: start: 20040806, end: 20041013
  2. LAMIVUDINE [Suspect]
     Indication: HIV INFECTION
     Route: 048
     Dates: start: 20040806, end: 20041013
  3. ABACAVIR [Suspect]
     Indication: HIV INFECTION
     Route: 048
     Dates: start: 20040806, end: 20041013
  4. ATAZANAVIR [Suspect]
     Indication: HIV INFECTION
     Route: 048
     Dates: start: 20040806, end: 20041013
  5. AZITHROMYCIN [Suspect]
     Indication: HIV INFECTION
     Route: 048
     Dates: start: 20040806, end: 20041013
  6. BACTRIM [Concomitant]
     Indication: HIV INFECTION
     Route: 048
  7. OMEPRAZOLE [Concomitant]
     Indication: DRUG USE FOR UNKNOWN INDICATION
     Route: 048
  8. CLAVULIN [Concomitant]
     Indication: DRUG USE FOR UNKNOWN INDICATION
     Route: 048
  9. FLUCONAZOLE [Concomitant]
     Indication: DRUG USE FOR UNKNOWN INDICATION
     Route: 048

REACTIONS (6)
  - DISSEMINATED INTRAVASCULAR COAGULATION [None]
  - HEADACHE [None]
  - HEPATITIS [None]
  - PYREXIA [None]
  - VOMITING [None]
  - WEIGHT DECREASED [None]
